FAERS Safety Report 6587831-7 (Version None)
Quarter: 2010Q1

REPORT INFORMATION
  Report Type: 
  Country: None (occurrence: None)
  Receive Date: 20100218
  Receipt Date: 20100212
  Transmission Date: 20100710
  Serious: Yes (Death, Congenital Anomaly, Other)
  Sender: FDA-Public Use
  Company Number: PHHY2010FR08759

PATIENT
  Sex: Male

DRUGS (3)
  1. NISIS [Suspect]
     Indication: DRUG EXPOSURE DURING PREGNANCY
     Dosage: UNK
     Route: 064
  2. LERCAN [Concomitant]
     Route: 064
  3. TEMERIT [Concomitant]
     Route: 064

REACTIONS (11)
  - ANURIA [None]
  - BRADYCARDIA [None]
  - DRUG EXPOSURE DURING PREGNANCY [None]
  - FOETAL DISORDER [None]
  - GASTROINTESTINAL MALFORMATION [None]
  - HYPOTENSION [None]
  - HYPOXIA [None]
  - KIDNEY SMALL [None]
  - MULTI-ORGAN FAILURE [None]
  - PULMONARY ARTERIAL HYPERTENSION [None]
  - RENAL FAILURE CHRONIC [None]
